FAERS Safety Report 24548095 (Version 1)
Quarter: 2024Q4

REPORT INFORMATION
  Report Type: Spontaneous
  Country: BR (occurrence: BR)
  Receive Date: 20241025
  Receipt Date: 20241025
  Transmission Date: 20250115
  Serious: Yes (Other)
  Sender: The J.Molner Company
  Company Number: BR-THE J. MOLNER COMPANY-202410000036

PATIENT

DRUGS (5)
  1. CIPROFLOXACIN [Suspect]
     Active Substance: CIPROFLOXACIN
     Indication: Penis injury
     Dosage: 500 MILLIGRAM, BID
  2. PREDNISONE [Concomitant]
     Active Substance: PREDNISONE
     Indication: Penis injury
     Dosage: 20 MILLIGRAM
  3. KETOPROFEN [Concomitant]
     Active Substance: KETOPROFEN
     Indication: Penis injury
     Dosage: 150 MILLIGRAM
  4. AZITHROMYCIN [Concomitant]
     Active Substance: AZITHROMYCIN
     Indication: Penis injury
     Dosage: 1 GRAM, SINGLE
  5. Quadriderm [Concomitant]
     Indication: Penis injury
     Dosage: 20 GRAM
     Route: 061

REACTIONS (3)
  - Neuropathy peripheral [Unknown]
  - Fluorosis [Unknown]
  - Tendon disorder [Unknown]
